FAERS Safety Report 5130741-2 (Version None)
Quarter: 2006Q4

REPORT INFORMATION
  Report Type: 
  Country: None (occurrence: None)
  Receive Date: 20061018
  Receipt Date: 20061018
  Transmission Date: 20070319
  Serious: Yes (Other)
  Sender: FDA-Public Use
  Company Number: None

PATIENT

DRUGS (1)
  1. CLOPIDOGREL [Suspect]
     Dosage: 75MG TABLET BY MOUTH
     Route: 048

REACTIONS (1)
  - PHARMACEUTICAL PRODUCT COMPLAINT [None]
